FAERS Safety Report 13031662 (Version 2)
Quarter: 2017Q1

REPORT INFORMATION
  Report Type: Spontaneous
  Country: FR (occurrence: FR)
  Receive Date: 20161215
  Receipt Date: 20170214
  Transmission Date: 20170428
  Serious: Yes (Other)
  Sender: FDA-Public Use
  Company Number: FR-NOVOPROD-523021

PATIENT
  Age: 68 Year
  Sex: Male
  Weight: 105 kg

DRUGS (11)
  1. METFORMINE [Concomitant]
     Active Substance: METFORMIN HYDROCHLORIDE
     Indication: TYPE 2 DIABETES MELLITUS
  2. XULTOPHY 100/3.6 [Suspect]
     Active Substance: INSULIN DEGLUDEC\LIRAGLUTIDE
     Dosage: 40 DS
     Route: 065
  3. EUPRESSYL                          /00631801/ [Concomitant]
     Active Substance: URAPIDIL
     Indication: HYPERTENSION
     Dosage: UNK (1 DF)
     Route: 048
  4. ACEBUTOLOL [Concomitant]
     Active Substance: ACEBUTOLOL
     Indication: HYPERTENSION
     Dosage: UNK (1 DF)
     Route: 048
  5. TAHOR [Concomitant]
     Active Substance: ATORVASTATIN CALCIUM
     Dosage: UNK (1 DF)
     Route: 048
  6. COVERAM [Concomitant]
     Active Substance: AMLODIPINE\PERINDOPRIL
     Indication: HYPERTENSION
     Dosage: 1 DF, QD
     Route: 065
  7. KARDEGIC [Concomitant]
     Active Substance: ASPIRIN LYSINE
     Indication: HYPERTENSION
     Dosage: UNK (1 DF)
     Route: 048
  8. XULTOPHY 100/3.6 [Suspect]
     Active Substance: INSULIN DEGLUDEC\LIRAGLUTIDE
     Indication: TYPE 2 DIABETES MELLITUS
     Dosage: 16 U, QD
     Route: 065
     Dates: start: 20161004
  9. XULTOPHY 100/3.6 [Suspect]
     Active Substance: INSULIN DEGLUDEC\LIRAGLUTIDE
     Dosage: 24 DS
     Route: 065
  10. XULTOPHY 100/3.6 [Suspect]
     Active Substance: INSULIN DEGLUDEC\LIRAGLUTIDE
     Dosage: 36 DS
     Route: 065
  11. ESIDREX K [Concomitant]
     Active Substance: HYDROCHLOROTHIAZIDE\POTASSIUM CHLORIDE
     Indication: HYPERTENSION
     Dosage: UNK (0.5 DF)
     Route: 048

REACTIONS (2)
  - Eye haemorrhage [Unknown]
  - Blood glucose increased [Unknown]

NARRATIVE: CASE EVENT DATE: 20161027
